FAERS Safety Report 20853361 (Version 1)
Quarter: 2022Q2

REPORT INFORMATION
  Report Type: Spontaneous
  Country: US (occurrence: None)
  Receive Date: 20220518
  Receipt Date: 20220518
  Transmission Date: 20220720
  Serious: No
  Sender: FDA-Public Use
  Company Number: None

PATIENT
  Age: 60 Year
  Sex: Female
  Weight: 128.25 kg

DRUGS (10)
  1. PAXLOVID [Suspect]
     Active Substance: NIRMATRELVIR\RITONAVIR
     Indication: COVID-19
     Dosage: OTHER QUANTITY : 10 DOSE PACKS;?FREQUENCY : TWICE A DAY;?
     Route: 048
     Dates: start: 20220506, end: 20220510
  2. SPIRONOLACTONE [Concomitant]
     Active Substance: SPIRONOLACTONE
  3. MONTELUKAST [Concomitant]
     Active Substance: MONTELUKAST SODIUM
  4. PROZAC [Concomitant]
     Active Substance: FLUOXETINE HYDROCHLORIDE
  5. CRESTOR [Concomitant]
     Active Substance: ROSUVASTATIN CALCIUM
  6. Silver Women^s multivitamin [Concomitant]
  7. VITAMIN D [Concomitant]
     Active Substance: VITAMIN D NOS
  8. ZINC [Concomitant]
     Active Substance: ZINC
  9. BIOTIN [Concomitant]
     Active Substance: BIOTIN
  10. ROGAINE [Concomitant]
     Active Substance: MINOXIDIL

REACTIONS (3)
  - Fatigue [None]
  - Sinus congestion [None]
  - Sneezing [None]

NARRATIVE: CASE EVENT DATE: 20220515
